FAERS Safety Report 8698582 (Version 2)
Quarter: 2012Q4

REPORT INFORMATION
  Report Type: 
  Country: US (occurrence: US)
  Receive Date: 20120802
  Receipt Date: 20120830
  Transmission Date: 20130627
  Serious: No
  Sender: FDA-Public Use
  Company Number: US-PFIZER INC-2012185443

PATIENT
  Age: 76 Year
  Sex: Male

DRUGS (1)
  1. SUTENT [Suspect]
     Indication: RENAL CANCER
     Dosage: 50 mg, 1x/day, (daily)
     Route: 048
     Dates: start: 20120123, end: 20120730

REACTIONS (2)
  - Disease progression [Unknown]
  - Renal cancer [Unknown]
